FAERS Safety Report 21297306 (Version 1)
Quarter: 2022Q3

REPORT INFORMATION
  Report Type: Spontaneous
  Country: NL (occurrence: NL)
  Receive Date: 20220906
  Receipt Date: 20220906
  Transmission Date: 20221027
  Serious: Yes (Hospitalization)
  Sender: FDA-Public Use
  Company Number: NL-MYLANLABS-2022M1090682

PATIENT
  Age: 60 Year
  Sex: Male

DRUGS (7)
  1. AMIODARONE [Suspect]
     Active Substance: AMIODARONE
     Indication: Arrhythmic storm
     Dosage: 400 MILLIGRAM, QD HIGH DOSE
     Route: 042
  2. METOPROLOL [Suspect]
     Active Substance: METOPROLOL
     Indication: Arrhythmic storm
     Dosage: 200 MILLIGRAM, QD
     Route: 065
  3. MEXILETINE [Suspect]
     Active Substance: MEXILETINE
     Indication: Arrhythmic storm
     Dosage: 600 MILLIGRAM, QD
     Route: 065
  4. PROPRANOLOL [Suspect]
     Active Substance: PROPRANOLOL HYDROCHLORIDE
     Indication: Arrhythmic storm
     Dosage: UNK
     Route: 065
  5. QUINIDINE [Suspect]
     Active Substance: QUINIDINE
     Indication: Arrhythmic storm
     Dosage: UNK
     Route: 065
  6. PROCAINAMIDE HYDROCHLORIDE [Suspect]
     Active Substance: PROCAINAMIDE HYDROCHLORIDE
     Indication: Arrhythmic storm
     Dosage: UNK
     Route: 065
  7. HEPARIN [Concomitant]
     Active Substance: HEPARIN SODIUM
     Indication: Anticoagulant therapy
     Dosage: UNK
     Route: 042

REACTIONS (1)
  - Drug ineffective [Unknown]
